FAERS Safety Report 12750910 (Version 2)
Quarter: 2016Q3

REPORT INFORMATION
  Report Type: Spontaneous
  Country: DE (occurrence: DE)
  Receive Date: 20160916
  Receipt Date: 20160929
  Transmission Date: 20161109
  Serious: Yes (Death)
  Sender: FDA-Public Use
  Company Number: DE-ACTELION-A-CH2016-142036

PATIENT
  Age: 28 Year
  Sex: Male
  Weight: 43 kg

DRUGS (6)
  1. OPSUMIT [Suspect]
     Active Substance: MACITENTAN
     Indication: PULMONARY ARTERIAL HYPERTENSION
     Dosage: 10 MG, UNK
     Route: 048
     Dates: start: 20151016, end: 20160708
  2. METOPROLOL. [Concomitant]
     Active Substance: METOPROLOL
     Indication: CARDIAC FAILURE
     Dosage: 47.5 MG, BID
     Route: 048
     Dates: start: 20140313, end: 20160708
  3. TOLVAPTAN [Concomitant]
     Active Substance: TOLVAPTAN
     Indication: CARDIAC FAILURE
     Dosage: 15 MG, OD
     Route: 048
     Dates: start: 20160428, end: 20160708
  4. TADALAFIL [Concomitant]
     Active Substance: TADALAFIL
     Dosage: 10 MG, OD
     Route: 048
     Dates: start: 20151016, end: 20160708
  5. ALDACTONE [Concomitant]
     Active Substance: SPIRONOLACTONE
     Indication: CARDIAC FAILURE
     Dosage: UNK, OD
     Route: 048
     Dates: start: 20151016, end: 20160708
  6. LISINOPRIL. [Concomitant]
     Active Substance: LISINOPRIL
     Indication: CARDIAC FAILURE
     Dosage: 2.5 MG, OD
     Route: 048
     Dates: start: 20160428, end: 20160708

REACTIONS (2)
  - Pulmonary arterial hypertension [Fatal]
  - Cardiac failure [Fatal]
